FAERS Safety Report 5571174-4 (Version None)
Quarter: 2007Q4

REPORT INFORMATION
  Report Type: 
  Country: None (occurrence: None)
  Receive Date: 20071221
  Receipt Date: 20061218
  Transmission Date: 20080405
  Serious: No
  Sender: FDA-Public Use
  Company Number: A0631916A

PATIENT
  Age: 81 Year
  Sex: Female

DRUGS (6)
  1. FLONASE [Suspect]
     Indication: RHINITIS
     Dosage: 4SPR PER DAY
     Route: 045
     Dates: start: 20061215
  2. COUMADIN [Concomitant]
  3. LANOXIN [Concomitant]
  4. VITAMINS [Concomitant]
  5. CALCIUM [Concomitant]
  6. HYDROXYUREA [Concomitant]

REACTIONS (3)
  - DRUG INEFFECTIVE [None]
  - EXPIRED DRUG ADMINISTERED [None]
  - ILL-DEFINED DISORDER [None]
